FAERS Safety Report 8382265-7 (Version None)
Quarter: 2012Q2

REPORT INFORMATION
  Report Type: 
  Country: None (occurrence: None)
  Receive Date: 20120524
  Receipt Date: 20120522
  Transmission Date: 20120825
  Serious: No
  Sender: FDA-Public Use
  Company Number: US-PFIZER INC-2012124084

PATIENT
  Sex: Female
  Weight: 86.168 kg

DRUGS (14)
  1. PEPCID [Concomitant]
     Dosage: UNK
  2. OLEIC ACID [Concomitant]
     Dosage: UNK
  3. MELOXICAM [Concomitant]
     Dosage: UNK
  4. CHANTIX [Suspect]
     Indication: SMOKING CESSATION THERAPY
     Dosage: 0.5 MG, 1X/DAY
     Route: 048
     Dates: start: 20120501, end: 20120501
  5. CHANTIX [Suspect]
     Dosage: 1 MG, 2X/DAY
     Route: 048
     Dates: start: 20120501
  6. XANAX [Concomitant]
     Dosage: UNK
  7. CELEXA [Concomitant]
     Dosage: UNK
  8. ASCORBIC ACID [Concomitant]
     Dosage: UNK
  9. PRAVACHOL [Concomitant]
     Dosage: UNK
  10. ZESTORETIC [Concomitant]
     Dosage: UNK
  11. REQUIP [Concomitant]
     Dosage: UNK
  12. NEURONTIN [Concomitant]
     Dosage: UNK
  13. WELLBUTRIN XL [Concomitant]
     Dosage: UNK
  14. OMEPRAZOLE [Concomitant]
     Dosage: UNK

REACTIONS (3)
  - DRUG INEFFECTIVE [None]
  - NAUSEA [None]
  - VOMITING [None]
